FAERS Safety Report 4552788-7 (Version None)
Quarter: 2005Q1

REPORT INFORMATION
  Report Type: 
  Country: None (occurrence: None)
  Receive Date: 20050114
  Receipt Date: 20041227
  Transmission Date: 20050727
  Serious: Yes (Life-Threatening, Hospitalization)
  Sender: FDA-Public Use
  Company Number: US-ROCHE-390787

PATIENT
  Age: 36 Year
  Sex: Male
  Weight: 81.4 kg

DRUGS (18)
  1. MYCOPHENOLATE MOFETIL [Suspect]
     Route: 048
     Dates: start: 20041206, end: 20041214
  2. MYCOPHENOLATE MOFETIL [Suspect]
     Route: 048
     Dates: start: 20041214, end: 20041227
  3. MYCOPHENOLATE MOFETIL [Suspect]
     Route: 048
     Dates: start: 20041227, end: 20041228
  4. MYCOPHENOLATE MOFETIL [Suspect]
     Route: 048
     Dates: start: 20050102
  5. TACROLIMUS [Suspect]
     Route: 048
     Dates: start: 20041206
  6. TACROLIMUS [Suspect]
     Dosage: DOSAGE LOWERED.
     Route: 048
     Dates: end: 20041225
  7. TACROLIMUS [Suspect]
     Route: 048
     Dates: start: 20041227
  8. THYROGLOBULIN [Suspect]
     Indication: DRUG USE FOR UNKNOWN INDICATION
     Route: 065
     Dates: start: 20041206, end: 20041211
  9. PROTONIX [Concomitant]
  10. REGLAN [Concomitant]
  11. ACYCLOVIR [Concomitant]
  12. CIPROFLOXACIN [Concomitant]
  13. LOPRESSOR [Concomitant]
  14. K-PHOS NEUTRAL [Concomitant]
  15. NORVASC [Concomitant]
  16. DAPSONE [Concomitant]
     Dosage: Q M-W-F
  17. MINOXIDIL [Concomitant]
  18. NYSTATIN [Concomitant]

REACTIONS (22)
  - ANGIOPATHY [None]
  - ARTERIOSCLEROSIS [None]
  - ATELECTASIS [None]
  - BLOOD CREATININE INCREASED [None]
  - CARDIOMEGALY [None]
  - DEHYDRATION [None]
  - DIARRHOEA [None]
  - DISSEMINATED INTRAVASCULAR COAGULATION [None]
  - DYSURIA [None]
  - EPSTEIN-BARR VIRUS ANTIBODY POSITIVE [None]
  - FATIGUE [None]
  - GASTROINTESTINAL DISORDER [None]
  - HAEMATOCRIT DECREASED [None]
  - HEPATOSPLENOMEGALY [None]
  - HERPES SIMPLEX SEROLOGY POSITIVE [None]
  - HYDRONEPHROSIS [None]
  - NAUSEA [None]
  - POLLAKIURIA [None]
  - PYREXIA [None]
  - ULTRASOUND SCAN ABNORMAL [None]
  - VIRAL INFECTION [None]
  - VOMITING [None]
